FAERS Safety Report 6676348-7 (Version None)
Quarter: 2010Q2

REPORT INFORMATION
  Report Type: 
  Country: None (occurrence: None)
  Receive Date: 20100408
  Receipt Date: 20100401
  Transmission Date: 20101027
  Serious: Yes (Other)
  Sender: FDA-Public Use
  Company Number: 2010US001100

PATIENT
  Age: 66 Year
  Sex: Female

DRUGS (6)
  1. VESICARE [Suspect]
     Indication: DRUG USE FOR UNKNOWN INDICATION
     Dosage: 10 MG, ORAL 5 MG, ORAL
     Route: 048
     Dates: start: 20091001
  2. STRATTERA (AUTOMOXETINE HYDROCHLORIDE) FORMULATION UNKNOWN [Concomitant]
  3. TOPROL XL (METOPROLOL SUCCINATE) FORMULATION UNKNOWN [Concomitant]
  4. MULTIVITAMIN (VITAMIN NOS) [Concomitant]
  5. SIMVASTATIN [Concomitant]
  6. DIABETES MEDICATION FORMULATION UNKNOWN [Concomitant]

REACTIONS (4)
  - ALOPECIA [None]
  - COLITIS ULCERATIVE [None]
  - CONSTIPATION [None]
  - WEIGHT DECREASED [None]
